FAERS Safety Report 4759963-7 (Version None)
Quarter: 2005Q3

REPORT INFORMATION
  Report Type: 
  Country: None (occurrence: None)
  Receive Date: 20050902
  Receipt Date: 20050523
  Transmission Date: 20060218
  Serious: Yes (Hospitalization, Disabling)
  Sender: FDA-Public Use
  Company Number: US-SOLVAY-00205001748

PATIENT
  Age: 551 Month
  Sex: Female
  Weight: 104.5 kg

DRUGS (10)
  1. CYCLOSPORINE [Concomitant]
     Indication: BEHCET'S SYNDROME
     Dosage: DAILY DOSE:  UNKNOWN
     Route: 048
  2. ANDROGEL [Suspect]
     Indication: ACCIDENTAL EXPOSURE
     Dosage: DAILY DOSE: 5 GRAM(S)
     Route: 062
     Dates: start: 20040401, end: 20050301
  3. ANDROGEL [Suspect]
     Dosage: DAILY DOSE: 10 GRAM(S)
     Route: 062
     Dates: start: 20050301, end: 20050501
  4. LORTAB [Concomitant]
     Indication: PAIN
     Dosage: DAILY DOSE:  UNKNOWN
     Route: 065
     Dates: start: 20041001, end: 20050101
  5. IMURAN [Suspect]
     Indication: LEUKOCYTOCLASTIC VASCULITIS
     Dosage: DAILY DOSE:  UNKNOWN
     Route: 065
     Dates: start: 20041101, end: 20041231
  6. PREDNISONE TAB [Suspect]
     Indication: LEUKOCYTOCLASTIC VASCULITIS
     Dosage: DAILY DOSE: 60 MILLICURIE(S)
     Route: 048
     Dates: start: 20040801, end: 20050201
  7. PREDNISONE TAB [Suspect]
     Dosage: DAILY DOSE:  UNKNOWN
     Route: 048
     Dates: start: 20050201, end: 20050501
  8. DABSON [Concomitant]
     Indication: LEUKOCYTOCLASTIC VASCULITIS
     Dosage: DAILY DOSE:  UNKNOWN
     Route: 065
     Dates: start: 20041001, end: 20041101
  9. METHOTREXATE [Concomitant]
     Indication: LEUKOCYTOCLASTIC VASCULITIS
     Dosage: DAILY DOSE:  UNKNOWN
     Route: 065
     Dates: start: 20040801, end: 20041001
  10. VALDREX [Concomitant]
     Indication: LEUKOCYTOCLASTIC VASCULITIS
     Dosage: DAILY DOSE:  UNKNOWN
     Route: 065
     Dates: start: 20040701, end: 20040701

REACTIONS (13)
  - AGGRESSION [None]
  - CONJUNCTIVITIS [None]
  - EYE PAIN [None]
  - HAIR GROWTH ABNORMAL [None]
  - HEADACHE [None]
  - KIDNEY INFECTION [None]
  - LEUKOCYTOCLASTIC VASCULITIS [None]
  - LIVER DISORDER [None]
  - PANCREATITIS [None]
  - RENAL DISORDER [None]
  - RETINAL DISORDER [None]
  - URTICARIA [None]
  - VISUAL DISTURBANCE [None]
